FAERS Safety Report 13142946 (Version 1)
Quarter: 2017Q1

REPORT INFORMATION
  Report Type: Spontaneous
  Country: US (occurrence: US)
  Receive Date: 20170124
  Receipt Date: 20170124
  Transmission Date: 20170428
  Serious: No
  Sender: FDA-Public Use
  Company Number: US-PFIZER INC-2017029450

PATIENT
  Age: 65 Year
  Sex: Female

DRUGS (2)
  1. CHANTIX [Suspect]
     Active Substance: VARENICLINE TARTRATE
     Indication: SMOKING CESSATION THERAPY
     Dosage: 1 DF, DAILY
     Route: 048
     Dates: start: 20170102, end: 20170104
  2. CHANTIX [Suspect]
     Active Substance: VARENICLINE TARTRATE
     Dosage: 1 DF, 2X/DAY
     Route: 048
     Dates: start: 20170105, end: 20170116

REACTIONS (6)
  - Headache [Recovered/Resolved]
  - Decreased appetite [Recovered/Resolved]
  - Abnormal dreams [Recovered/Resolved]
  - Fatigue [Recovered/Resolved]
  - Intentional product misuse [Unknown]
  - Nausea [Recovered/Resolved]

NARRATIVE: CASE EVENT DATE: 20170106
